FAERS Safety Report 17964852 (Version 2)
Quarter: 2020Q3

REPORT INFORMATION
  Report Type: Spontaneous
  Country: JP (occurrence: JP)
  Receive Date: 20200630
  Receipt Date: 20200708
  Transmission Date: 20201103
  Serious: Yes (Other)
  Sender: FDA-Public Use
  Company Number: JP-AMGEN-JPNSP2020092537

PATIENT
  Sex: Female

DRUGS (4)
  1. NITROPEN [Concomitant]
     Active Substance: NITROGLYCERIN
     Dosage: 0.3 MILLIGRAM (THREE TIME)
     Dates: start: 202004
  2. NITROPEN [Concomitant]
     Active Substance: NITROGLYCERIN
     Dosage: 0.3 MILLIGRAM (ONCE)
     Dates: start: 202006
  3. EVENITY [Suspect]
     Active Substance: ROMOSOZUMAB-AQQG
     Indication: OSTEOPOROSIS
     Dosage: 210 MILLIGRAM
     Route: 065
  4. PRALIA [Concomitant]
     Active Substance: DENOSUMAB
     Dosage: 60 MILLIGRAM, QD
     Dates: start: 202006

REACTIONS (3)
  - Tricuspid valve incompetence [Unknown]
  - Cardiac disorder [Recovered/Resolved]
  - Atrial fibrillation [Unknown]

NARRATIVE: CASE EVENT DATE: 201912
